FAERS Safety Report 8456934 (Version 6)
Quarter: 2016Q1

REPORT INFORMATION
  Report Type: Spontaneous
  Country: US (occurrence: US)
  Receive Date: 20120313
  Receipt Date: 20160303
  Transmission Date: 20160526
  Serious: Yes (Death, Hospitalization)
  Sender: FDA-Public Use
  Company Number: US-ASTRAZENECA-2012SE16397

PATIENT
  Age: 16916 Day
  Sex: Male
  Weight: 90.7 kg

DRUGS (7)
  1. NAPROXEN. [Concomitant]
     Active Substance: NAPROXEN
     Dates: start: 20050916
  2. ATENOLOL. [Concomitant]
     Active Substance: ATENOLOL
     Dates: start: 2004, end: 2010
  3. CRESTOR [Suspect]
     Active Substance: ROSUVASTATIN CALCIUM
     Route: 048
     Dates: start: 20050607
  4. COUMADIN [Concomitant]
     Active Substance: WARFARIN SODIUM
  5. ALLEGRA [Concomitant]
     Active Substance: FEXOFENADINE HYDROCHLORIDE
     Dates: start: 20050425
  6. FLUTICASONE [Concomitant]
     Active Substance: FLUTICASONE\FLUTICASONE PROPIONATE
     Dates: start: 20061122
  7. CRESTOR [Suspect]
     Active Substance: ROSUVASTATIN CALCIUM
     Route: 048
     Dates: start: 200401, end: 201003

REACTIONS (4)
  - Cardiac failure congestive [Unknown]
  - Hypertrophic cardiomyopathy [Fatal]
  - Myocardial infarction [Fatal]
  - Hypertensive heart disease [Fatal]

NARRATIVE: CASE EVENT DATE: 20070207
